FAERS Safety Report 4556019-3 (Version None)
Quarter: 2005Q1

REPORT INFORMATION
  Report Type: 
  Country: None (occurrence: None)
  Receive Date: 20050119
  Receipt Date: 20050112
  Transmission Date: 20050727
  Serious: Yes (Other)
  Sender: FDA-Public Use
  Company Number: PHBS2005SE00769

PATIENT
  Age: 76 Year
  Sex: Female

DRUGS (11)
  1. MINDIAB [Concomitant]
     Dosage: 5 MG/D, SEVERAL YRS
  2. TENORMIN [Concomitant]
     Dosage: 50 MG/D, SEVERAL YRS
  3. FLUCONAZOLE [Concomitant]
     Dosage: 50 MG/D, LAST MONTH
  4. ACETAMINOPHEN [Concomitant]
     Dosage: LAST MONTH
  5. SODIUM PICOSULFATE [Concomitant]
     Dosage: LAST MONTH
  6. PRIMPERAN INJ [Concomitant]
     Dosage: 30 MG/D, LAST MONTH
  7. NEUROTON [Concomitant]
     Dosage: LAST DAYS
  8. MORPHINE [Concomitant]
  9. DURAGESIC [Concomitant]
  10. PREDNISOLONE [Concomitant]
     Dosage: LAST DAYS
  11. FEMARA [Suspect]
     Indication: BREAST CANCER FEMALE
     Dosage: 2.5 MG/DAY
     Route: 048
     Dates: start: 20041001

REACTIONS (8)
  - BEDRIDDEN [None]
  - CONDITION AGGRAVATED [None]
  - HYPOAESTHESIA [None]
  - MONONEUROPATHY [None]
  - PAIN IN EXTREMITY [None]
  - PERIPHERAL COLDNESS [None]
  - POLYNEUROPATHY [None]
  - RADICULOPATHY [None]
